FAERS Safety Report 23084123 (Version 1)
Quarter: 2023Q4

REPORT INFORMATION
  Report Type: Spontaneous
  Country: US (occurrence: None)
  Receive Date: 20231018
  Receipt Date: 20231018
  Transmission Date: 20240109
  Serious: Yes (Hospitalization)
  Sender: FDA-Public Use
  Company Number: None

PATIENT
  Age: 68 Year
  Sex: Male
  Weight: 94.3 kg

DRUGS (4)
  1. SACUBITRIL [Suspect]
     Active Substance: SACUBITRIL
  2. TARTRATE [Concomitant]
  3. FUROSEMIDE [Concomitant]
     Active Substance: FUROSEMIDE
  4. ALDACTONE [Concomitant]
     Active Substance: SPIRONOLACTONE

REACTIONS (2)
  - Hypotension [None]
  - Product substitution issue [None]

NARRATIVE: CASE EVENT DATE: 20221108
